APPROVED DRUG PRODUCT: PLAVIX
Active Ingredient: CLOPIDOGREL BISULFATE
Strength: EQ 300MG BASE
Dosage Form/Route: TABLET;ORAL
Application: N020839 | Product #002 | TE Code: AB
Applicant: SANOFI AVENTIS US LLC
Approved: Sep 20, 2007 | RLD: Yes | RS: No | Type: RX